FAERS Safety Report 20861607 (Version 1)
Quarter: 2022Q2

REPORT INFORMATION
  Report Type: Spontaneous
  Country: US (occurrence: None)
  Receive Date: 20220520
  Receipt Date: 20220520
  Transmission Date: 20220720
  Serious: Yes (Death)
  Sender: FDA-Public Use
  Company Number: None

PATIENT
  Age: 78 Year
  Sex: Female
  Weight: 63.9 kg

DRUGS (5)
  1. SECRET ANTIPERSPIRANT POWDER FRESH [Suspect]
     Active Substance: ALUMINUM CHLOROHYDRATE
     Indication: Hyperhidrosis
     Dosage: FREQUENCY : TWICE A DAY;?
     Route: 061
  2. PROZAC [Concomitant]
     Active Substance: FLUOXETINE HYDROCHLORIDE
  3. JAKAFI [Concomitant]
     Active Substance: RUXOLITINIB
  4. thyroid meds [Concomitant]
  5. VITAMINS [Concomitant]
     Active Substance: VITAMINS

REACTIONS (5)
  - Myelofibrosis [None]
  - Thyroid cancer [None]
  - COVID-19 [None]
  - Recalled product administered [None]
  - Product formulation issue [None]

NARRATIVE: CASE EVENT DATE: 20200712
